FAERS Safety Report 4277546-2 (Version None)
Quarter: 2004Q1

REPORT INFORMATION
  Report Type: 
  Country: None (occurrence: None)
  Receive Date: 20040121
  Receipt Date: 20040112
  Transmission Date: 20041129
  Serious: Yes (Hospitalization)
  Sender: FDA-Public Use
  Company Number: HQWYE432702SEP03

PATIENT
  Age: 60 Year
  Sex: Female

DRUGS (2)
  1. PREMPRO [Suspect]
     Dates: start: 19960801, end: 20030201
  2. PREMARIN [Suspect]

REACTIONS (15)
  - ALOPECIA [None]
  - AMNESIA [None]
  - ARTHRALGIA [None]
  - BRADYCARDIA [None]
  - CARDIOGENIC SHOCK [None]
  - CORONARY ARTERY DISEASE [None]
  - EJECTION FRACTION DECREASED [None]
  - HYPOAESTHESIA [None]
  - HYPOTENSION [None]
  - INSOMNIA [None]
  - MYOCARDIAL INFARCTION [None]
  - PAIN IN EXTREMITY [None]
  - TINNITUS [None]
  - TRIGGER FINGER [None]
  - VENTRICULAR TACHYCARDIA [None]
